FAERS Safety Report 4427305-2 (Version None)
Quarter: 2004Q3

REPORT INFORMATION
  Report Type: 
  Country: None (occurrence: None)
  Receive Date: 20040811
  Receipt Date: 20040809
  Transmission Date: 20050211
  Serious: Yes (Other)
  Sender: FDA-Public Use
  Company Number: S04-USA-03236-01

PATIENT
  Age: 73 Year
  Sex: Female

DRUGS (10)
  1. LEXAPRO [Suspect]
     Indication: ANXIETY
     Dosage: 10 MG QD PO
     Route: 048
     Dates: start: 20040601
  2. LEXAPRO [Suspect]
     Indication: DEPRESSION
     Dosage: 10 MG QD PO
     Route: 048
     Dates: start: 20040601
  3. ATACAND (CANDESARTA CILEXETIL) [Concomitant]
  4. HYDROCHLOROTHIAZIDE [Concomitant]
  5. ZOCOR [Concomitant]
  6. ZYRTEC [Concomitant]
  7. ALLEGRA [Concomitant]
  8. NEXIUM [Concomitant]
  9. ADVIL [Concomitant]
  10. TYLENOL [Concomitant]

REACTIONS (2)
  - HEADACHE [None]
  - HYPERTENSION [None]
